FAERS Safety Report 23393410 (Version 2)
Quarter: 2024Q1

REPORT INFORMATION
  Report Type: Spontaneous
  Country: SK (occurrence: SK)
  Receive Date: 20240111
  Receipt Date: 20240229
  Transmission Date: 20240410
  Serious: Yes (Other)
  Sender: FDA-Public Use
  Company Number: SK-002147023-NVSC2023SK191004

PATIENT
  Age: 74 Year
  Sex: Female

DRUGS (3)
  1. DENOSUMAB [Suspect]
     Active Substance: DENOSUMAB
     Indication: Osteoporosis postmenopausal
     Dosage: UNK (EVERY HALF YEAR FROM 2019 TO 2023)
     Route: 058
     Dates: start: 2019, end: 2023
  2. RISEDRONATE SODIUM [Suspect]
     Active Substance: RISEDRONATE SODIUM
     Indication: Osteoporosis postmenopausal
     Dosage: UNK, QW (WEEKLY)
     Route: 065
     Dates: start: 2005
  3. ZOLEDRONIC ACID [Suspect]
     Active Substance: ZOLEDRONIC ACID
     Indication: Osteoporosis postmenopausal
     Dosage: UNK, Q12MO (ANUALLY)
     Route: 042
     Dates: start: 2012, end: 2017

REACTIONS (1)
  - Osteonecrosis of jaw [Unknown]
